FAERS Safety Report 18747020 (Version 2)
Quarter: 2021Q1

REPORT INFORMATION
  Report Type: Spontaneous
  Country: JP (occurrence: JP)
  Receive Date: 20210115
  Receipt Date: 20210201
  Transmission Date: 20210419
  Serious: Yes (Death, Other)
  Sender: FDA-Public Use
  Company Number: JP-009507513-2101JPN001434J

PATIENT
  Age: 80 Year
  Sex: Male

DRUGS (1)
  1. KEYTRUDA [Suspect]
     Active Substance: PEMBROLIZUMAB
     Indication: HEAD AND NECK CANCER STAGE IV
     Dosage: 200 MILLIGRAM, Q3W
     Route: 041
     Dates: start: 20210107, end: 20210107

REACTIONS (4)
  - Interstitial lung disease [Fatal]
  - Cardiac arrest [Unknown]
  - Pleural effusion [Unknown]
  - Lip discolouration [Unknown]

NARRATIVE: CASE EVENT DATE: 20210111
